FAERS Safety Report 17291833 (Version 1)
Quarter: 2020Q1

REPORT INFORMATION
  Report Type: Spontaneous
  Country: FR (occurrence: FR)
  Receive Date: 20200121
  Receipt Date: 20200121
  Transmission Date: 20200409
  Serious: Yes (Hospitalization)
  Sender: FDA-Public Use
  Company Number: FR-BAYER-2019-215612

PATIENT
  Age: 88 Year
  Sex: Female

DRUGS (3)
  1. SELEXIDIN [MECILLINAM] [Suspect]
     Active Substance: AMDINOCILLIN
     Indication: URINARY TRACT INFECTION
     Dosage: 800 MG, QD
     Route: 048
     Dates: start: 20190909, end: 20190914
  2. CIFLOX 500 MG [Suspect]
     Active Substance: CIPROFLOXACIN
     Indication: URINARY TRACT INFECTION
     Dosage: 500 MG, UNK
     Route: 048
     Dates: start: 20191005, end: 20191015
  3. IMETH [METHOTREXATE] [Interacting]
     Active Substance: METHOTREXATE
     Indication: RHEUMATOID ARTHRITIS
     Dosage: 10 MG, OW
     Route: 048
     Dates: start: 20130927, end: 20191010

REACTIONS (1)
  - Pancytopenia [Recovered/Resolved]

NARRATIVE: CASE EVENT DATE: 20191016
